FAERS Safety Report 11702202 (Version 1)
Quarter: 2015Q4

REPORT INFORMATION
  Report Type: Spontaneous
  Country: US (occurrence: US)
  Receive Date: 20151105
  Receipt Date: 20151105
  Transmission Date: 20160304
  Serious: No
  Sender: FDA-Public Use
  Company Number: US-BAYER-2015-452952

PATIENT
  Sex: Female

DRUGS (1)
  1. NEXAVAR [Suspect]
     Active Substance: SORAFENIB
     Indication: LEUKAEMIA
     Dosage: UNK
     Route: 048

REACTIONS (3)
  - Off label use [None]
  - Constipation [None]
  - Diarrhoea [None]
